FAERS Safety Report 9034845 (Version 1)
Quarter: 2013Q1

REPORT INFORMATION
  Report Type: Spontaneous
  Country: US (occurrence: None)
  Receive Date: 20130116
  Receipt Date: 20130116
  Transmission Date: 20140127
  Serious: Yes (Hospitalization)
  Sender: FDA-Public Use
  Company Number: None

PATIENT
  Age: 54 Year
  Sex: Male
  Weight: 78.6 kg

DRUGS (3)
  1. TEMAZEPAM [Suspect]
     Indication: SOMNOLENCE
     Dosage: 15 MG  HS  PO
     Route: 048
     Dates: start: 20110517
  2. LORAZEPAM [Suspect]
     Indication: SOMNOLENCE
     Dosage: 1 MG  HS  PO
     Route: 048
     Dates: start: 20110517
  3. LORAZEPAM [Suspect]
     Indication: ANXIETY
     Dosage: 1 MG  HS  PO
     Route: 048
     Dates: start: 20110517

REACTIONS (3)
  - Rectal haemorrhage [None]
  - Haemorrhoidal haemorrhage [None]
  - Drug ineffective [None]
